FAERS Safety Report 12610617 (Version 1)
Quarter: 2016Q3

REPORT INFORMATION
  Report Type: Spontaneous
  Country: GB (occurrence: GB)
  Receive Date: 20160801
  Receipt Date: 20160801
  Transmission Date: 20161109
  Serious: Yes (Other)
  Sender: FDA-Public Use
  Company Number: GB-TEVA-679666ACC

PATIENT
  Age: 40 Year
  Sex: Female
  Weight: 82.55 kg

DRUGS (16)
  1. SALBUTAMOL [Interacting]
     Active Substance: ALBUTEROL
     Route: 055
  2. CHLORHEXIDINE GLUCONATE. [Interacting]
     Active Substance: CHLORHEXIDINE GLUCONATE
     Indication: MOUTH ULCERATION
     Dosage: 20 ML DAILY;
     Route: 048
     Dates: start: 20160708, end: 20160708
  3. ORAMORPH [Interacting]
     Active Substance: MORPHINE SULFATE
  4. SERETIDE [Interacting]
     Active Substance: FLUTICASONE PROPIONATE\SALMETEROL XINAFOATE
     Route: 055
  5. PREDNISOLONE. [Interacting]
     Active Substance: PREDNISOLONE
  6. DIHYDROCODEINE [Interacting]
     Active Substance: DIHYDROCODEINE
  7. ADCAL-D3 [Concomitant]
     Active Substance: CALCIUM CARBONATE\CHOLECALCIFEROL
  8. LACTULOSE. [Concomitant]
     Active Substance: LACTULOSE
  9. LYRICA [Interacting]
     Active Substance: PREGABALIN
     Dosage: 150MG AND 300MG
  10. ALENDRONIC ACID [Concomitant]
     Active Substance: ALENDRONIC ACID
  11. MONTELUKAST [Concomitant]
     Active Substance: MONTELUKAST SODIUM
  12. LORATADINE. [Suspect]
     Active Substance: LORATADINE
  13. CYCLIZINE [Interacting]
     Active Substance: CYCLIZINE
     Route: 030
  14. PHENOXYMETHYLPENICILLIN [Concomitant]
     Active Substance: PENICILLIN V
  15. AMITRIPTYLINE [Concomitant]
     Active Substance: AMITRIPTYLINE
  16. COSMOCOL [Concomitant]

REACTIONS (7)
  - Asthma [Recovering/Resolving]
  - Feeling drunk [Recovering/Resolving]
  - Feeling abnormal [Recovering/Resolving]
  - Oral discomfort [Recovering/Resolving]
  - Swelling face [Recovering/Resolving]
  - Drug interaction [Unknown]
  - Oxygen saturation decreased [Recovering/Resolving]

NARRATIVE: CASE EVENT DATE: 20160708
